FAERS Safety Report 19991124 (Version 1)
Quarter: 2021Q4

REPORT INFORMATION
  Report Type: Spontaneous
  Country: US (occurrence: US)
  Receive Date: 20211025
  Receipt Date: 20211025
  Transmission Date: 20220303
  Serious: Yes (Other)
  Sender: FDA-Public Use
  Company Number: US-STRIDES ARCOLAB LIMITED-2021SP004641

PATIENT
  Sex: Male

DRUGS (14)
  1. CALCITRIOL [Suspect]
     Active Substance: CALCITRIOL
     Indication: Hypocalcaemia
     Dosage: 0.3 MICROGRAM DAILY
     Route: 065
  2. CALCITRIOL [Suspect]
     Active Substance: CALCITRIOL
     Dosage: FREQUENT DOSE ADJUSTMENTS
     Route: 065
  3. CALCITRIOL [Suspect]
     Active Substance: CALCITRIOL
     Dosage: 0.9 MICROGRAM DAILY
     Route: 065
  4. POTASSIUM CITRATE [Suspect]
     Active Substance: POTASSIUM CITRATE
     Indication: Hypercalciuria
     Dosage: UNK
     Route: 065
  5. POTASSIUM CITRATE [Suspect]
     Active Substance: POTASSIUM CITRATE
     Indication: Nephrolithiasis
  6. CALCIUM [Suspect]
     Active Substance: CALCIUM
     Indication: Hypocalcaemia
     Dosage: 2100 MILLIGRAM DAILY
     Route: 065
  7. CALCIUM [Suspect]
     Active Substance: CALCIUM
     Dosage: FREQUENT DOSE ADJUSTMENTS
     Route: 065
  8. CALCIUM [Suspect]
     Active Substance: CALCIUM
     Dosage: 600 MILLIGRAM DAILY
     Route: 065
  9. CALCIUM [Suspect]
     Active Substance: CALCIUM
     Dosage: 2400 MILLIGRAM DAILY
     Route: 065
  10. CHLOROTHIAZIDE [Suspect]
     Active Substance: CHLOROTHIAZIDE
     Indication: Hypercalciuria
     Dosage: UNK
     Route: 065
  11. CHLOROTHIAZIDE [Suspect]
     Active Substance: CHLOROTHIAZIDE
     Indication: Nephrolithiasis
  12. HYDROCHLOROTHIAZIDE [Suspect]
     Active Substance: HYDROCHLOROTHIAZIDE
     Indication: Hypercalciuria
     Dosage: UNK
     Route: 065
  13. HYDROCHLOROTHIAZIDE [Suspect]
     Active Substance: HYDROCHLOROTHIAZIDE
     Indication: Nephrolithiasis
  14. DEXTROSE\WATER [Concomitant]
     Active Substance: DEXTROSE\WATER
     Indication: Product used for unknown indication
     Dosage: 60/40 UNITS UNSPECIFIED
     Route: 065

REACTIONS (4)
  - Nephrocalcinosis [Not Recovered/Not Resolved]
  - Nephrolithiasis [Not Recovered/Not Resolved]
  - Drug ineffective [Unknown]
  - Hypercalciuria [Recovered/Resolved]
